FAERS Safety Report 5552001-8 (Version None)
Quarter: 2007Q4

REPORT INFORMATION
  Report Type: 
  Country: None (occurrence: None)
  Receive Date: 20071210
  Receipt Date: 20071122
  Transmission Date: 20080405
  Serious: Yes (Death, Other)
  Sender: FDA-Public Use
  Company Number: A-JP2007-18598

PATIENT
  Age: 76 Year
  Sex: Male
  Weight: 53 kg

DRUGS (5)
  1. TRACLEER [Suspect]
     Indication: PULMONARY HYPERTENSION
     Dosage: 62.5 MG, QD, ORAL; 62.5 MG, BID, ORAL
     Route: 048
     Dates: start: 20061010, end: 20070103
  2. TRACLEER [Suspect]
     Indication: PULMONARY HYPERTENSION
     Dosage: 62.5 MG, QD, ORAL; 62.5 MG, BID, ORAL
     Route: 048
     Dates: start: 20070104, end: 20070118
  3. WARFARIN POTASSIUM (WARFARIN POTASSIUM) [Concomitant]
  4. ISOSORBIDE MONONITRATE [Concomitant]
  5. OXYGEN (OXYGEN) [Concomitant]

REACTIONS (4)
  - ALANINE AMINOTRANSFERASE INCREASED [None]
  - ASPARTATE AMINOTRANSFERASE INCREASED [None]
  - BLOOD BILIRUBIN INCREASED [None]
  - CARDIAC ARREST [None]
